FAERS Safety Report 5140597-X (Version None)
Quarter: 2006Q4

REPORT INFORMATION
  Report Type: 
  Country: None (occurrence: None)
  Receive Date: 20061025
  Receipt Date: 20061005
  Transmission Date: 20070319
  Serious: Yes (Hospitalization)
  Sender: FDA-Public Use
  Company Number: 2006-148753-NL

PATIENT
  Age: 64 Year
  Sex: Male

DRUGS (7)
  1. MIRTAZAPINE [Suspect]
     Indication: DEPRESSION
     Dosage: 30 MG QD/DF ORAL
     Route: 048
     Dates: start: 20060204, end: 20060207
  2. MIRTAZAPINE [Suspect]
     Indication: DEPRESSION
     Dosage: 30 MG QD/DF ORAL
     Route: 048
     Dates: start: 20060207
  3. LEUPRORELIN [Concomitant]
  4. ACETYLSALICYLIC ACID SRT [Concomitant]
  5. AMLODIPINE BESYLATE [Concomitant]
  6. IDROQUARK [Concomitant]
  7. DELORAZEPAM [Concomitant]

REACTIONS (3)
  - ATRIOVENTRICULAR BLOCK THIRD DEGREE [None]
  - SYNCOPE [None]
  - TRIFASCICULAR BLOCK [None]
